FAERS Safety Report 23395369 (Version 1)
Quarter: 2024Q1

REPORT INFORMATION
  Report Type: Report from Study
  Country: IT (occurrence: IT)
  Receive Date: 20240112
  Receipt Date: 20240112
  Transmission Date: 20240409
  Serious: Yes (Hospitalization, Other)
  Sender: FDA-Public Use
  Company Number: IT-Axellia-005022

PATIENT
  Age: 70 Year
  Sex: Male

DRUGS (5)
  1. COLISTIMETHATE SODIUM [Suspect]
     Active Substance: COLISTIMETHATE SODIUM
     Indication: Acinetobacter infection
     Dosage: 9 MU AS LOADING DOSE, THEN 4.5 MU Q12 HOURS
  2. CEFIDEROCOL [Concomitant]
     Active Substance: CEFIDEROCOL
     Indication: Acinetobacter infection
  3. TIGECYCLINE [Concomitant]
     Active Substance: TIGECYCLINE
     Indication: Acinetobacter infection
     Dosage: LOADING DOSE
  4. CEFIDEROCOL [Concomitant]
     Active Substance: CEFIDEROCOL
     Indication: Acinetobacter infection
  5. TIGECYCLINE [Concomitant]
     Active Substance: TIGECYCLINE
     Indication: Acinetobacter infection

REACTIONS (1)
  - Acute kidney injury [Unknown]
